FAERS Safety Report 9732220 (Version 2)
Quarter: 2013Q4

REPORT INFORMATION
  Report Type: Spontaneous
  Country: US (occurrence: US)
  Receive Date: 20131205
  Receipt Date: 20131210
  Transmission Date: 20140711
  Serious: Yes (Disabling, Other)
  Sender: FDA-Public Use
  Company Number: US-SA-2013SA125804

PATIENT
  Age: 75 Year
  Sex: Female

DRUGS (3)
  1. SOLOSTAR [Suspect]
     Indication: TYPE 2 DIABETES MELLITUS
  2. LANTUS SOLOSTAR [Suspect]
     Indication: TYPE 2 DIABETES MELLITUS
     Dosage: DOSE:30 UNIT(S)
     Route: 058
  3. NOVOLOG [Suspect]
     Route: 065

REACTIONS (8)
  - Macular degeneration [Unknown]
  - Blindness [Unknown]
  - Disability [Unknown]
  - Neuropathy peripheral [Unknown]
  - Pain [Unknown]
  - Hypoaesthesia [Unknown]
  - Therapeutic response decreased [Unknown]
  - Injection site pain [Unknown]
